FAERS Safety Report 7630387-8 (Version None)
Quarter: 2011Q3

REPORT INFORMATION
  Report Type: 
  Country: None (occurrence: None)
  Receive Date: 20110722
  Receipt Date: 20110714
  Transmission Date: 20111222
  Serious: Yes (Hospitalization, Other)
  Sender: FDA-Public Use
  Company Number: CA-GLAXOSMITHKLINE-A0933956A

PATIENT
  Sex: Male
  Weight: 130.5 kg

DRUGS (10)
  1. CALCIUM CARBONATE [Concomitant]
  2. ACETAMINOPHEN [Concomitant]
  3. ZOPICLONE [Concomitant]
  4. FLOMAX [Concomitant]
  5. ALENDRONATE SODIUM [Concomitant]
     Dosage: 20MG WEEKLY
  6. FUROSEMIDE [Concomitant]
     Indication: OEDEMA PERIPHERAL
     Dosage: 60MG PER DAY
  7. POTASSIUM [Concomitant]
  8. MICARDIS [Concomitant]
  9. ADVAIR DISKUS 100/50 [Suspect]
     Indication: ASTHMA
     Dosage: 1PUFF TWICE PER DAY
     Route: 055
     Dates: start: 20060101
  10. VITAMIN TAB [Concomitant]
     Dosage: 2TAB PER DAY

REACTIONS (7)
  - PAIN [None]
  - UPPER LIMB FRACTURE [None]
  - ARTHRALGIA [None]
  - FALL [None]
  - WRIST FRACTURE [None]
  - LIGAMENT SPRAIN [None]
  - NASOPHARYNGITIS [None]
